FAERS Safety Report 9586162 (Version 1)
Quarter: 2013Q4

REPORT INFORMATION
  Report Type: Spontaneous
  Country: FR (occurrence: None)
  Receive Date: 20131001
  Receipt Date: 20131001
  Transmission Date: 20140711
  Serious: Yes (Other)
  Sender: FDA-Public Use
  Company Number: SYM-2013-11026

PATIENT
  Age: 60 Year
  Sex: Female

DRUGS (1)
  1. TILDIEM [Suspect]
     Indication: TACHYCARDIA
     Route: 048
     Dates: start: 201309

REACTIONS (5)
  - Paraesthesia [None]
  - Headache [None]
  - Hot flush [None]
  - Insomnia [None]
  - Burning sensation [None]
